FAERS Safety Report 12615746 (Version 1)
Quarter: 2016Q3

REPORT INFORMATION
  Report Type: Spontaneous
  Country: US (occurrence: US)
  Receive Date: 20160802
  Receipt Date: 20160802
  Transmission Date: 20161109
  Serious: No
  Sender: FDA-Public Use
  Company Number: US-BAYER-2016-149352

PATIENT
  Sex: Female

DRUGS (1)
  1. CLIMARA [Suspect]
     Active Substance: ESTRADIOL
     Indication: MENOPAUSAL SYMPTOMS
     Dosage: UNK
     Route: 062
     Dates: start: 2006

REACTIONS (6)
  - Hot flush [None]
  - Adverse event [None]
  - Insomnia [None]
  - Insomnia [None]
  - Drug ineffective [None]
  - Hot flush [None]

NARRATIVE: CASE EVENT DATE: 2016
